FAERS Safety Report 18280918 (Version 1)
Quarter: 2020Q3

REPORT INFORMATION
  Report Type: Spontaneous
  Country: US (occurrence: US)
  Receive Date: 20200918
  Receipt Date: 20200918
  Transmission Date: 20201103
  Serious: No
  Sender: FDA-Public Use
  Company Number: US-ALLERGAN-1951933US

PATIENT
  Sex: Male

DRUGS (2)
  1. SAPHRIS [Suspect]
     Active Substance: ASENAPINE MALEATE
     Indication: AUTISM SPECTRUM DISORDER
  2. SAPHRIS [Suspect]
     Active Substance: ASENAPINE MALEATE
     Indication: BIPOLAR DISORDER
     Dosage: 2.5 MG, QHS
     Route: 065

REACTIONS (1)
  - Off label use [Unknown]

NARRATIVE: CASE EVENT DATE: 2019
